FAERS Safety Report 14446683 (Version 1)
Quarter: 2018Q1

REPORT INFORMATION
  Report Type: Spontaneous
  Country: US (occurrence: US)
  Receive Date: 20180126
  Receipt Date: 20180126
  Transmission Date: 20180509
  Serious: No
  Sender: FDA-Public Use
  Company Number: US-ABBVIE-17K-163-2086589-00

PATIENT
  Age: 39 Year
  Sex: Female

DRUGS (5)
  1. XELJANZ [Suspect]
     Active Substance: TOFACITINIB CITRATE
     Indication: PRODUCT USED FOR UNKNOWN INDICATION
     Route: 065
  2. KENALOG [Concomitant]
     Active Substance: TRIAMCINOLONE ACETONIDE
     Indication: PRODUCT USED FOR UNKNOWN INDICATION
  3. HYDROXYCHLOROQUINE [Concomitant]
     Active Substance: HYDROXYCHLOROQUINE
     Indication: PRODUCT USED FOR UNKNOWN INDICATION
  4. METHOTREXATE. [Suspect]
     Active Substance: METHOTREXATE
     Indication: PRODUCT USED FOR UNKNOWN INDICATION
     Route: 065
     Dates: start: 201510
  5. HUMIRA [Suspect]
     Active Substance: ADALIMUMAB
     Indication: RHEUMATOID ARTHRITIS
     Route: 058
     Dates: start: 20140923

REACTIONS (14)
  - Sjogren^s syndrome [Unknown]
  - Joint swelling [Recovering/Resolving]
  - Blood pressure increased [Unknown]
  - Drug effect incomplete [Unknown]
  - Arthralgia [Recovering/Resolving]
  - Chondrodystrophy [Unknown]
  - Infertility female [Unknown]
  - Noninfective gingivitis [Unknown]
  - Ligament sprain [Unknown]
  - Obesity [Unknown]
  - Inflammation [Recovering/Resolving]
  - Enthesopathy [Unknown]
  - Photosensitivity reaction [Unknown]
  - Rheumatoid arthritis [Unknown]

NARRATIVE: CASE EVENT DATE: 20170829
